FAERS Safety Report 7477901-3 (Version None)
Quarter: 2011Q2

REPORT INFORMATION
  Report Type: 
  Country: None (occurrence: None)
  Receive Date: 20110513
  Receipt Date: 20090306
  Transmission Date: 20111010
  Serious: Yes (Other)
  Sender: FDA-Public Use
  Company Number: US-BAYER-2011-008778

PATIENT
  Age: 58 Year
  Sex: Female
  Weight: 86.168 kg

DRUGS (20)
  1. METOPROLOL SUCCINATE [Concomitant]
     Dosage: 25 MG, UNK
     Route: 048
     Dates: start: 20070716
  2. PLASMA [Concomitant]
     Dosage: 1 L, UNK
     Route: 042
     Dates: start: 20070730
  3. PRIMACOR [Concomitant]
     Dosage: UNK
     Route: 042
     Dates: start: 20070730
  4. MORPHINE [Concomitant]
     Dosage: UNK
     Route: 042
     Dates: start: 20070730
  5. RED BLOOD CELLS [Concomitant]
     Dosage: 1 U, UNK
     Route: 042
     Dates: start: 20070730
  6. LEVOTHROID [Concomitant]
     Dosage: 25 ?G, UNK, LONG TERM USE
     Route: 048
  7. AMIODARONE HCL [Concomitant]
     Dosage: 200 MG, QD
     Route: 048
     Dates: start: 20070716
  8. ZINACEF [Concomitant]
     Dosage: 1.5 G, UNK
     Route: 042
     Dates: start: 20070730
  9. LIDOCAINE [Concomitant]
     Dosage: 200 MG, UNK
     Route: 042
     Dates: start: 20070730
  10. NIPRIDE [Concomitant]
     Dosage: UNK
     Route: 042
     Dates: start: 20070730
  11. TRASYLOL [Suspect]
     Indication: AORTIC SURGERY
     Dosage: 200 ML, LOADING DOSE
     Route: 042
     Dates: start: 20070730
  12. TRASYLOL [Suspect]
     Dosage: 50ML/HR, INFUSION
     Route: 042
     Dates: start: 20070730
  13. ALEVE [Concomitant]
     Dosage: LONG TERM USE, BID
     Route: 048
  14. ACETYLSALICYLIC ACID SRT [Concomitant]
     Dosage: 325 MG, QD
     Route: 048
     Dates: start: 20070716
  15. DIPRIVAN [Concomitant]
     Dosage: UNK
     Route: 042
     Dates: start: 20070730
  16. INSULIN [INSULIN] [Concomitant]
     Dosage: UNK
     Route: 042
  17. LIDOCAINE [Concomitant]
     Dosage: 60ML/HR, INFUSION
     Route: 042
     Dates: start: 20070730
  18. PHENYLEPHRINE HCL [Concomitant]
     Dosage: UNK
     Route: 042
     Dates: start: 20070730
  19. TRIAMCINOLONE [Concomitant]
     Dosage: 2 SPRAYS, LONG TERM USE
     Route: 045
  20. ALBUMIN [ALBUMEN] [Concomitant]
     Dosage: 500 ML, UNK
     Route: 042
     Dates: start: 20070730

REACTIONS (18)
  - RENAL IMPAIRMENT [None]
  - HEMIPLEGIA [None]
  - PULMONARY OEDEMA [None]
  - STRESS [None]
  - RENAL INJURY [None]
  - MYOCARDIAL INFARCTION [None]
  - RENAL FAILURE [None]
  - CARDIAC DISORDER [None]
  - MEMORY IMPAIRMENT [None]
  - ANXIETY [None]
  - PAIN [None]
  - INJURY [None]
  - MULTI-ORGAN FAILURE [None]
  - DEPRESSION [None]
  - FEAR [None]
  - CEREBROVASCULAR ACCIDENT [None]
  - EMOTIONAL DISTRESS [None]
  - UNEVALUABLE EVENT [None]
